FAERS Safety Report 16203262 (Version 1)
Quarter: 2019Q2

REPORT INFORMATION
  Report Type: Spontaneous
  Country: US (occurrence: US)
  Receive Date: 20190416
  Receipt Date: 20190416
  Transmission Date: 20190711
  Serious: Yes (Other)
  Sender: FDA-Public Use
  Company Number: US-APOTEX-2019AP011688

PATIENT
  Age: 90 Year
  Sex: Female

DRUGS (12)
  1. OXALIPLATIN. [Suspect]
     Active Substance: OXALIPLATIN
     Indication: ANGIOCENTRIC LYMPHOMA
  2. PEGASPARGASE [Suspect]
     Active Substance: PEGASPARGASE
     Indication: NON-HODGKIN^S LYMPHOMA
  3. GEMCITABINE [Suspect]
     Active Substance: GEMCITABINE\GEMCITABINE HYDROCHLORIDE
     Indication: NON-HODGKIN^S LYMPHOMA
  4. PEGASPARGASE [Suspect]
     Active Substance: PEGASPARGASE
     Indication: NODULE
     Dosage: UNK
     Route: 065
  5. GEMCITABINE [Suspect]
     Active Substance: GEMCITABINE\GEMCITABINE HYDROCHLORIDE
     Indication: NODULE
     Dosage: UNK
     Route: 065
  6. GEMCITABINE [Suspect]
     Active Substance: GEMCITABINE\GEMCITABINE HYDROCHLORIDE
     Indication: ANGIOCENTRIC LYMPHOMA
  7. OXALIPLATIN. [Suspect]
     Active Substance: OXALIPLATIN
     Indication: NON-HODGKIN^S LYMPHOMA
  8. GEMCITABINE [Suspect]
     Active Substance: GEMCITABINE\GEMCITABINE HYDROCHLORIDE
     Indication: MASS
  9. PEGASPARGASE [Suspect]
     Active Substance: PEGASPARGASE
     Indication: MASS
  10. OXALIPLATIN. [Suspect]
     Active Substance: OXALIPLATIN
     Indication: MASS
  11. OXALIPLATIN. [Suspect]
     Active Substance: OXALIPLATIN
     Indication: NODULE
     Dosage: UNK
     Route: 065
  12. PEGASPARGASE [Suspect]
     Active Substance: PEGASPARGASE
     Indication: ANGIOCENTRIC LYMPHOMA

REACTIONS (1)
  - Drug intolerance [Unknown]
